FAERS Safety Report 6934874-7 (Version None)
Quarter: 2010Q3

REPORT INFORMATION
  Report Type: 
  Country: None (occurrence: None)
  Receive Date: 20100821
  Receipt Date: 20100806
  Transmission Date: 20110219
  Serious: Yes (Other)
  Sender: FDA-Public Use
  Company Number: PHHY2010DE27922

PATIENT
  Sex: Female

DRUGS (2)
  1. DEFERASIROX [Suspect]
     Dosage: 1750 MG/DAY
     Route: 048
     Dates: start: 20080101
  2. DEFERASIROX [Suspect]
     Dosage: 1500 MG/DAY
     Route: 048

REACTIONS (5)
  - EYE SWELLING [None]
  - FLUID RETENTION [None]
  - OEDEMA PERIPHERAL [None]
  - SWELLING FACE [None]
  - WEIGHT INCREASED [None]
